FAERS Safety Report 11654093 (Version 3)
Quarter: 2016Q1

REPORT INFORMATION
  Report Type: Report from Study
  Country: US (occurrence: US)
  Receive Date: 20151023
  Receipt Date: 20160120
  Transmission Date: 20160525
  Serious: Yes (Other)
  Sender: FDA-Public Use
  Company Number: US-AMGEN-USASL2015109138

PATIENT
  Age: 57 Year
  Sex: Female

DRUGS (2)
  1. ENBREL [Suspect]
     Active Substance: ETANERCEPT
     Indication: RHEUMATOID ARTHRITIS
     Dosage: 50 MG, QWK
     Route: 065
     Dates: start: 20100501
  2. ENBREL [Suspect]
     Active Substance: ETANERCEPT
     Indication: PSORIASIS

REACTIONS (9)
  - Hypersensitivity [Unknown]
  - Erythema [Unknown]
  - Skin swelling [Unknown]
  - Pruritus [Unknown]
  - Intentional product misuse [Unknown]
  - Impaired work ability [Unknown]
  - Hip surgery [Unknown]
  - Unevaluable event [Unknown]
  - Frustration tolerance decreased [Unknown]
